FAERS Safety Report 8280145 (Version 2)
Quarter: 2012Q4

REPORT INFORMATION
  Report Type: 
  Country: US (occurrence: US)
  Receive Date: 20111208
  Receipt Date: 20120911
  Transmission Date: 20130627
  Serious: No
  Sender: FDA-Public Use
  Company Number: US-BAYER-2011-116400

PATIENT
  Sex: Female

DRUGS (1)
  1. BEYAZ [Suspect]
     Indication: ACNE
     Dosage: 1 DF, QD
     Route: 048
     Dates: start: 201110

REACTIONS (5)
  - Polymenorrhoea [Recovered/Resolved]
  - Menorrhagia [None]
  - Metrorrhagia [Recovered/Resolved]
  - Metrorrhagia [Recovered/Resolved]
  - Metrorrhagia [Recovered/Resolved]
